FAERS Safety Report 8889971 (Version 1)
Quarter: 2012Q4

REPORT INFORMATION
  Report Type: 
  Country: GB (occurrence: GB)
  Receive Date: 20121107
  Receipt Date: 20121107
  Transmission Date: 20130627
  Serious: Yes (Other)
  Sender: FDA-Public Use
  Company Number: GB-JNJFOC-20121016650

PATIENT
  Age: 40 Year
  Sex: Female

DRUGS (11)
  1. PALIPERIDONE PALMITATE [Suspect]
     Indication: SCHIZOAFFECTIVE DISORDER
     Route: 030
     Dates: start: 201207
  2. OLANZAPINE [Concomitant]
     Route: 065
  3. OLANZAPINE [Concomitant]
     Route: 065
     Dates: start: 20121015
  4. FLUOXETINE [Concomitant]
     Route: 065
  5. PREGABALIN [Concomitant]
     Indication: DRUG THERAPY
     Route: 065
  6. BECLOMETHASONE [Concomitant]
     Route: 065
  7. MOVICOL [Concomitant]
     Route: 065
  8. SALBUTAMOL [Concomitant]
     Route: 065
  9. HYDROMOL [Concomitant]
     Route: 065
  10. LANSOPRAZOLE [Concomitant]
     Route: 065
  11. LORAZEPAM [Concomitant]
     Route: 065

REACTIONS (9)
  - Hallucination [Unknown]
  - Hepatitis C [Unknown]
  - Aggression [Unknown]
  - Depressed mood [Unknown]
  - Paranoia [Unknown]
  - Hostility [Unknown]
  - Irritability [Unknown]
  - Emotional distress [Unknown]
  - Insomnia [Unknown]
